FAERS Safety Report 11191731 (Version 1)
Quarter: 2015Q2

REPORT INFORMATION
  Report Type: Spontaneous
  Country: IN (occurrence: IN)
  Receive Date: 20150616
  Receipt Date: 20150616
  Transmission Date: 20150821
  Serious: Yes (Hospitalization)
  Sender: FDA-Public Use
  Company Number: IN-ACCORD-031437

PATIENT
  Age: 31 Year
  Sex: Male

DRUGS (7)
  1. VALPROIC ACID. [Suspect]
     Active Substance: VALPROIC ACID
     Indication: MANIA
  2. VALPROIC ACID. [Suspect]
     Active Substance: VALPROIC ACID
     Indication: MANIA
     Dosage: ON 22ND DAY ADMISSION
  3. NO DRUG NAME [Suspect]
     Active Substance: UNSPECIFIED INGREDIENT
     Indication: MANIA
  4. NO DRUG NAME [Suspect]
     Active Substance: UNSPECIFIED INGREDIENT
     Indication: MANIA
     Dosage: 1500 MG IN DIVIDED DOSES OVER COUPLE OF DAYS
  5. OLANZAPINE. [Suspect]
     Active Substance: OLANZAPINE
     Indication: MANIA
  6. TOPIRAMATE. [Suspect]
     Active Substance: TOPIRAMATE
     Indication: VASCULAR HEADACHE
  7. OLANZAPINE. [Suspect]
     Active Substance: OLANZAPINE
     Indication: MANIA
     Dosage: ON 22ND DAY OF ADMISSION

REACTIONS (9)
  - Hyperammonaemia [Recovered/Resolved]
  - Nausea [None]
  - Logorrhoea [Recovered/Resolved]
  - Vascular headache [None]
  - Confusional state [Recovered/Resolved]
  - Gait disturbance [Recovered/Resolved]
  - Vomiting [None]
  - Agitation [Recovered/Resolved]
  - Disorientation [Recovered/Resolved]
